FAERS Safety Report 5335961-X (Version None)
Quarter: 2007Q2

REPORT INFORMATION
  Report Type: 
  Country: None (occurrence: None)
  Receive Date: 20070527
  Receipt Date: 20070522
  Transmission Date: 20071010
  Serious: Yes (Hospitalization, Disabling)
  Sender: FDA-Public Use
  Company Number: JP-SP-2007-00394

PATIENT
  Age: 76 Year
  Sex: Male

DRUGS (5)
  1. IMMUCYST [Suspect]
     Indication: BLADDER CANCER
     Route: 043
     Dates: start: 20060111, end: 20070105
  2. IMMUCYST [Suspect]
     Route: 043
     Dates: start: 20060111, end: 20070105
  3. IMMUCYST [Suspect]
     Route: 043
     Dates: start: 20060111, end: 20070105
  4. CIMETIDINE HCL [Concomitant]
  5. LEVOFLOXACIN [Concomitant]
     Dates: start: 20050914, end: 20070105

REACTIONS (6)
  - DYSURIA [None]
  - HAEMATURIA [None]
  - INCORRECT DOSE ADMINISTERED [None]
  - POLLAKIURIA [None]
  - URGE INCONTINENCE [None]
  - URINARY BLADDER ATROPHY [None]
